FAERS Safety Report 6312601-4 (Version None)
Quarter: 2009Q3

REPORT INFORMATION
  Report Type: 
  Country: None (occurrence: None)
  Receive Date: 20090813
  Receipt Date: 20090806
  Transmission Date: 20100115
  Serious: Yes (Death, Hospitalization, Other)
  Sender: FDA-Public Use
  Company Number: 2009US003049

PATIENT
  Age: 63 Year
  Sex: Male

DRUGS (3)
  1. PROGRAF [Suspect]
     Indication: ACUTE GRAFT VERSUS HOST DISEASE
  2. CORTICOSTEROID NOS (CORTICOSTEROID NOS) [Concomitant]
  3. CORTICOSTEROIDS FOR SYSTEMIC USE [Concomitant]

REACTIONS (5)
  - CYSTITIS HAEMORRHAGIC [None]
  - CYTOMEGALOVIRUS VIRAEMIA [None]
  - PARAINFLUENZAE VIRUS INFECTION [None]
  - PNEUMONIA FUNGAL [None]
  - RESPIRATORY FAILURE [None]
